FAERS Safety Report 9934721 (Version 1)
Quarter: 2014Q1

REPORT INFORMATION
  Report Type: Spontaneous
  Country: US (occurrence: US)
  Receive Date: 20140228
  Receipt Date: 20140228
  Transmission Date: 20141002
  Serious: No
  Sender: FDA-Public Use
  Company Number: US-ASTRAZENECA-2013SE64573

PATIENT
  Age: 68 Year
  Sex: Female
  Weight: 59.9 kg

DRUGS (7)
  1. TOPROL XL [Suspect]
     Indication: MYOCARDIAL INFARCTION
     Route: 048
  2. TOPROL XL [Suspect]
     Indication: MYOCARDIAL INFARCTION
     Route: 048
     Dates: start: 20130805, end: 20130807
  3. TOPROL XL [Suspect]
     Indication: MYOCARDIAL INFARCTION
     Route: 048
     Dates: start: 20130808, end: 20130808
  4. TOPROL XL [Suspect]
     Indication: MYOCARDIAL INFARCTION
     Route: 048
     Dates: start: 20130808
  5. LIPITOR [Concomitant]
     Indication: BLOOD CHOLESTEROL INCREASED
  6. NIASPAN [Concomitant]
     Indication: MYOCARDIAL INFARCTION
  7. ASPIRIN [Concomitant]
     Indication: MYOCARDIAL INFARCTION
     Dosage: 2 DAILY

REACTIONS (6)
  - Feeling abnormal [Unknown]
  - Headache [Unknown]
  - Headache [Unknown]
  - Disorientation [Unknown]
  - Dizziness [Unknown]
  - Intentional drug misuse [Unknown]
